FAERS Safety Report 11881972 (Version 1)
Quarter: 2015Q4

REPORT INFORMATION
  Report Type: Spontaneous
  Country: IT (occurrence: IT)
  Receive Date: 20151231
  Receipt Date: 20151231
  Transmission Date: 20160305
  Serious: Yes (Other)
  Sender: FDA-Public Use
  Company Number: IT-CIPLA LTD.-2015IT09779

PATIENT

DRUGS (5)
  1. EPIRUBICIN [Suspect]
     Active Substance: EPIRUBICIN
     Indication: BREAST CANCER
     Dosage: 90 MG/M2,  3-H INFUSION ON DAY 1, EVERY 21 DAYS FOR 4 CYCLES.
     Route: 042
  2. RANITIDINE [Concomitant]
     Active Substance: RANITIDINE\RANITIDINE HYDROCHLORIDE
     Dosage: 50 MG, UNK
     Route: 065
  3. DEXAMETHASONE. [Concomitant]
     Active Substance: DEXAMETHASONE
     Dosage: 20 MG, UNK
     Route: 065
  4. ORPHENADRINE [Concomitant]
     Active Substance: ORPHENADRINE
     Dosage: 40 MG, UNK
     Route: 065
  5. PACLITAXEL. [Suspect]
     Active Substance: PACLITAXEL
     Indication: BREAST CANCER
     Dosage: 175 MG/M2, DAY 1,  3-H INFUSION ON DAY 1, EVERY 21 DAYS FOR 4 CYCLES

REACTIONS (2)
  - Neoplasm malignant [Unknown]
  - Breast cancer recurrent [Unknown]
